FAERS Safety Report 9436730 (Version 1)
Quarter: 2013Q3

REPORT INFORMATION
  Report Type: Report from Study
  Country: CA (occurrence: CA)
  Receive Date: 20130802
  Receipt Date: 20130802
  Transmission Date: 20140515
  Serious: Yes (Other)
  Sender: FDA-Public Use
  Company Number: CA-JNJFOC-20130716973

PATIENT
  Age: 59 Year
  Sex: Female
  Weight: 85 kg

DRUGS (4)
  1. REMICADE [Suspect]
     Indication: RHEUMATOID ARTHRITIS
     Route: 042
     Dates: start: 20031111
  2. VENLAFAXINE [Concomitant]
     Route: 065
  3. PANTOLOC [Concomitant]
     Route: 065
  4. AZATHIOPRINE [Concomitant]
     Route: 065

REACTIONS (1)
  - Skin cancer [Not Recovered/Not Resolved]
